FAERS Safety Report 7677806-9 (Version None)
Quarter: 2011Q3

REPORT INFORMATION
  Report Type: 
  Country: None (occurrence: None)
  Receive Date: 20110811
  Receipt Date: 20110729
  Transmission Date: 20111222
  Serious: Yes (Other)
  Sender: FDA-Public Use
  Company Number: US-JNJFOC-20110804528

PATIENT
  Age: 81 Year
  Sex: Female
  Weight: 92.53 kg

DRUGS (7)
  1. METOPROLOL TARTRATE [Concomitant]
     Indication: ANGINA PECTORIS
     Route: 065
  2. CYMBALTA [Concomitant]
     Indication: DEPRESSION
     Route: 065
  3. FUROSEMIDE [Concomitant]
     Indication: BLADDER DISORDER
     Route: 065
  4. ALPRAZOLAM [Concomitant]
     Indication: TREMOR
     Route: 065
  5. PREMARIN [Concomitant]
     Route: 065
  6. EXTRA STRENGTH TYLENOL [Suspect]
     Route: 048
  7. EXTRA STRENGTH TYLENOL [Suspect]
     Indication: PAIN
     Route: 048
     Dates: start: 20110726, end: 20110726

REACTIONS (2)
  - CONFUSIONAL STATE [None]
  - DEAFNESS [None]
